FAERS Safety Report 9807333 (Version 1)
Quarter: 2014Q1

REPORT INFORMATION
  Report Type: Spontaneous
  Country: US (occurrence: US)
  Receive Date: 20140110
  Receipt Date: 20140110
  Transmission Date: 20141002
  Serious: Yes (Other)
  Sender: FDA-Public Use
  Company Number: US-BRISTOL-MYERS SQUIBB COMPANY-19971217

PATIENT
  Age: 66 Year
  Sex: Male
  Weight: 69.39 kg

DRUGS (3)
  1. COUMADIN [Suspect]
     Indication: MITRAL VALVE REPLACEMENT
     Dosage: 1DF= 7.5 MG ONE DAY AND 3MG THE NEXT DAY
     Route: 048
     Dates: start: 200108, end: 20140103
  2. TRIAZOLAM [Concomitant]
  3. OLANZAPINE [Concomitant]

REACTIONS (4)
  - Osteopenia [Not Recovered/Not Resolved]
  - International normalised ratio increased [Recovered/Resolved]
  - Gastritis [Not Recovered/Not Resolved]
  - Weight decreased [Not Recovered/Not Resolved]
